FAERS Safety Report 24560039 (Version 3)
Quarter: 2025Q2

REPORT INFORMATION
  Report Type: Spontaneous
  Country: JP (occurrence: JP)
  Receive Date: 20241029
  Receipt Date: 20250602
  Transmission Date: 20250716
  Serious: Yes (Death, Life-Threatening, Other)
  Sender: ALEXION PHARMACEUTICALS
  Company Number: JP-ASTRAZENECA-240104761_064320_P_1

PATIENT
  Age: 91 Year

DRUGS (5)
  1. ANDEXXA [Suspect]
     Active Substance: ANDEXANET ALFA
     Indication: Cerebral haemorrhage
  2. ANDEXXA [Suspect]
     Active Substance: ANDEXANET ALFA
  3. XARELTO [Concomitant]
     Active Substance: RIVAROXABAN
     Indication: Cerebral infarction
  4. XARELTO [Concomitant]
     Active Substance: RIVAROXABAN
  5. XARELTO [Concomitant]
     Active Substance: RIVAROXABAN

REACTIONS (2)
  - Cerebral haemorrhage [Fatal]
  - Brain oedema [Not Recovered/Not Resolved]
